FAERS Safety Report 5893555-1 (Version None)
Quarter: 2008Q3

REPORT INFORMATION
  Report Type: 
  Country: None (occurrence: None)
  Receive Date: 20080919
  Receipt Date: 20080905
  Transmission Date: 20090109
  Serious: Yes (Hospitalization)
  Sender: FDA-Public Use
  Company Number: 200808IM000240

PATIENT
  Age: 43 Year
  Sex: Male
  Weight: 82 kg

DRUGS (4)
  1. ACTIMMUNE [Suspect]
     Indication: HEPATITIS C
  2. PEGINTERFERON GAMMA-2A [Suspect]
     Indication: HEPATITIS C
     Dosage: 180 UG, ONCE WEEKLY
     Dates: start: 20050314
  3. RIBAVIRIN [Suspect]
     Indication: HEPATITIS C
     Dosage: 1200 MG, DAILY
     Dates: start: 20050314
  4. LEXOMIL [Concomitant]

REACTIONS (2)
  - ANXIETY [None]
  - SUBILEUS [None]
